FAERS Safety Report 9406201 (Version 3)
Quarter: 2013Q3

REPORT INFORMATION
  Report Type: Spontaneous
  Country: HR (occurrence: HR)
  Receive Date: 20130717
  Receipt Date: 20130828
  Transmission Date: 20140515
  Serious: Yes (Other)
  Sender: FDA-Public Use
  Company Number: HR-ABBOTT-13P-216-1117738-00

PATIENT
  Age: 51 Year
  Sex: Female

DRUGS (14)
  1. HUMIRA [Suspect]
     Indication: ANKYLOSING SPONDYLITIS
     Route: 058
     Dates: start: 20120725
  2. CONTROLOC [Concomitant]
     Indication: GASTRITIS
     Route: 048
     Dates: end: 20120306
  3. CONTROLOC [Concomitant]
     Route: 048
     Dates: start: 20120306, end: 20120613
  4. CONTROLOC [Concomitant]
     Route: 048
     Dates: start: 20120613
  5. KLAVOCIN [Concomitant]
     Indication: URINARY TRACT DISORDER
  6. ORMIDOL [Concomitant]
     Indication: CARDIAC DISORDER
     Route: 048
     Dates: start: 20130706, end: 20130706
  7. NORMABEL [Concomitant]
     Indication: ANXIETY DISORDER
     Dosage: OCCASIONALLY
     Route: 048
     Dates: start: 20130606, end: 20130711
  8. CONCOR [Concomitant]
     Indication: CARDIAC DISORDER
     Route: 048
     Dates: start: 20130606, end: 20130711
  9. INDOMETACIN [Concomitant]
     Indication: ANKYLOSING SPONDYLITIS
     Dosage: ROUTE ROA
     Dates: end: 20120306
  10. INDOMETACIN [Concomitant]
     Dosage: 3 X DAY FOR 10 TO 14 DAYS THEN 2 X DAY
     Route: 048
     Dates: start: 20120306, end: 20120613
  11. INDOMETACIN [Concomitant]
     Dosage: 75 - 100 MG; 25 MG 3-4 TIMES DAY
     Route: 048
     Dates: start: 20120613, end: 20120703
  12. INDOMETACIN [Concomitant]
     Dosage: 50 - 75 MG; 25 MG 3-4 TIMES DAY
     Route: 048
     Dates: start: 20120703, end: 20130711
  13. ZALDIAR [Concomitant]
     Indication: PAIN
     Dosage: 2-3 TIMES A DAY
     Route: 048
     Dates: end: 20120703
  14. ZALDIAR [Concomitant]
     Dosage: 1-3 TIMES A DAY
     Route: 048
     Dates: start: 20120703

REACTIONS (26)
  - Nephritis [Unknown]
  - Renal failure [Not Recovered/Not Resolved]
  - Pain in extremity [Recovered/Resolved]
  - Local swelling [Recovered/Resolved]
  - Dizziness [Recovered/Resolved]
  - Pyrexia [Recovered/Resolved]
  - Cough [Unknown]
  - Rash [Recovered/Resolved]
  - Body temperature decreased [Recovered/Resolved]
  - Local swelling [Unknown]
  - Urticaria [Unknown]
  - Dyspnoea [Unknown]
  - Polyuria [Unknown]
  - Polydipsia [Unknown]
  - Dysuria [Recovered/Resolved]
  - Pruritus [Unknown]
  - Dysphagia [Recovered/Resolved]
  - Erythema [Unknown]
  - Vitiligo [Unknown]
  - Local swelling [Recovered/Resolved]
  - Hypoaesthesia [Recovered/Resolved]
  - Decreased appetite [Unknown]
  - Extrasystoles [Unknown]
  - Haematuria [Unknown]
  - Drug dose omission [Unknown]
  - Drug dose omission [Unknown]
